FAERS Safety Report 8936414 (Version 3)
Quarter: 2013Q1

REPORT INFORMATION
  Report Type: Spontaneous
  Country: IT (occurrence: IT)
  Receive Date: 20121130
  Receipt Date: 20130227
  Transmission Date: 20140127
  Serious: Yes (Hospitalization)
  Sender: FDA-Public Use
  Company Number: IT-B.I. PHARMACEUTICALS,INC./RIDGEFIELD-2012-IT-00364IT

PATIENT
  Age: 82 Year
  Sex: Male

DRUGS (9)
  1. MICARDIS [Suspect]
     Dosage: 80 MG
     Route: 048
     Dates: start: 20110802, end: 20120801
  2. VALSARTAN [Suspect]
     Dosage: 80 MG
     Route: 048
     Dates: start: 20110802, end: 20120801
  3. LASIX [Suspect]
     Dosage: 25 MG
     Route: 048
     Dates: start: 20110802, end: 20120801
  4. ALDACTONE [Suspect]
     Dosage: 25 MG
     Route: 048
     Dates: start: 20110802, end: 20120801
  5. METFORMIN HYDROCHLORIDE [Concomitant]
     Route: 048
  6. DAPAROX [Concomitant]
  7. SPIRIVA RESPIMAT [Concomitant]
  8. NEXIUM [Concomitant]
     Route: 048
  9. ATIMOS [Concomitant]
     Dosage: STRENGTH: 12 MCG/PUFF

REACTIONS (4)
  - Asthenia [Not Recovered/Not Resolved]
  - Dehydration [Recovered/Resolved]
  - Hyperkalaemia [Recovered/Resolved]
  - Hyponatraemia [Recovered/Resolved]
